FAERS Safety Report 6559231-7 (Version None)
Quarter: 2010Q1

REPORT INFORMATION
  Report Type: 
  Country: None (occurrence: None)
  Receive Date: 20100129
  Receipt Date: 20090929
  Transmission Date: 20100710
  Serious: No
  Sender: FDA-Public Use
  Company Number: US-ABBOTT-09P-163-0592113-00

PATIENT
  Sex: Male
  Weight: 83.99 kg

DRUGS (5)
  1. HUMIRA [Suspect]
     Indication: SYSTEMIC LUPUS ERYTHEMATOSUS
     Route: 058
     Dates: start: 20080101, end: 20080101
  2. HUMIRA [Suspect]
     Indication: RHEUMATOID ARTHRITIS
     Route: 058
     Dates: start: 20060101, end: 20080101
  3. HUMIRA [Suspect]
     Indication: PSORIATIC ARTHROPATHY
     Route: 058
     Dates: start: 20080101, end: 20090801
  4. METHOTREXATE [Concomitant]
     Indication: RHEUMATOID ARTHRITIS
  5. METHOTREXATE [Concomitant]
     Indication: PSORIATIC ARTHROPATHY

REACTIONS (8)
  - DRUG DOSE OMISSION [None]
  - DRUG TOXICITY [None]
  - FEELING ABNORMAL [None]
  - JOINT SWELLING [None]
  - NIGHT SWEATS [None]
  - PAIN [None]
  - PSORIASIS [None]
  - TREMOR [None]
